FAERS Safety Report 24008139 (Version 1)
Quarter: 2024Q2

REPORT INFORMATION
  Report Type: Spontaneous
  Country: CN (occurrence: CN)
  Receive Date: 20240625
  Receipt Date: 20240625
  Transmission Date: 20240716
  Serious: Yes (Other)
  Sender: FDA-Public Use
  Company Number: CN-BEIGENE-BGN-2024-009242

PATIENT

DRUGS (2)
  1. TISLELIZUMAB [Suspect]
     Active Substance: TISLELIZUMAB
     Indication: Breast cancer recurrent
     Dosage: 200 MILLIGRAM, Q3WK
     Route: 041
     Dates: start: 20240531
  2. PACLITAXEL [Concomitant]
     Active Substance: PACLITAXEL
     Indication: Breast cancer recurrent
     Dosage: UNK UNK, Q3WK
     Dates: start: 20240531

REACTIONS (3)
  - Dermatitis herpetiformis [Unknown]
  - Mouth ulceration [Unknown]
  - Rash [Unknown]

NARRATIVE: CASE EVENT DATE: 20240610
